FAERS Safety Report 9867881 (Version 1)
Quarter: 2014Q1

REPORT INFORMATION
  Report Type: Spontaneous
  Country: JP (occurrence: JP)
  Receive Date: 20140204
  Receipt Date: 20140204
  Transmission Date: 20141002
  Serious: Yes (Hospitalization)
  Sender: FDA-Public Use
  Company Number: JP-BAXTER-2014BAX004661

PATIENT
  Sex: Male

DRUGS (2)
  1. DIANEAL-N PD-2 2.5 PD SOLUTION [Suspect]
     Indication: RENAL FAILURE CHRONIC
     Route: 033
  2. EXTRANEAL PD SOLUTION [Suspect]
     Indication: RENAL FAILURE CHRONIC
     Route: 033

REACTIONS (3)
  - Gastric ulcer [Recovering/Resolving]
  - Cardiac failure [Recovering/Resolving]
  - Anaemia [Recovering/Resolving]
